FAERS Safety Report 7085445-6 (Version None)
Quarter: 2010Q4

REPORT INFORMATION
  Report Type: 
  Country: None (occurrence: None)
  Receive Date: 20101105
  Receipt Date: 20101029
  Transmission Date: 20110411
  Serious: Yes (Other)
  Sender: FDA-Public Use
  Company Number: SE-PFIZER INC-2010137921

PATIENT
  Age: 41 Year
  Sex: Female

DRUGS (4)
  1. ZOLOFT [Suspect]
     Indication: DEPRESSION
     Dosage: UNK
     Dates: start: 20100917
  2. ZOLOFT [Suspect]
     Indication: ANXIETY
  3. CORTISONE [Concomitant]
     Indication: HYPERSENSITIVITY
     Dosage: UNK
  4. BRICANYL [Concomitant]
     Indication: ASTHMA
     Dosage: UNK

REACTIONS (5)
  - AMNESIA [None]
  - FATIGUE [None]
  - MANIA [None]
  - PANIC DISORDER [None]
  - POOR QUALITY SLEEP [None]
